FAERS Safety Report 19778887 (Version 2)
Quarter: 2021Q4

REPORT INFORMATION
  Report Type: Spontaneous
  Country: CA (occurrence: CA)
  Receive Date: 20210902
  Receipt Date: 20211111
  Transmission Date: 20220304
  Serious: Yes (Hospitalization, Congenital Anomaly, Other)
  Sender: FDA-Public Use
  Company Number: None

PATIENT
  Age: 1 Day
  Weight: 2 kg

DRUGS (8)
  1. ESCITALOPRAM OXALATE [Suspect]
     Active Substance: ESCITALOPRAM OXALATE
     Route: 064
  2. GABAPENTIN [Suspect]
     Active Substance: GABAPENTIN
     Dosage: 1 EVERY 1 DAYS
     Route: 064
  3. QUETIAPINE FUMARATE [Suspect]
     Active Substance: QUETIAPINE FUMARATE
     Route: 064
  4. RABEPRAZOLE [Suspect]
     Active Substance: RABEPRAZOLE
     Route: 064
  5. ZOPICLONE [Suspect]
     Active Substance: ZOPICLONE
     Route: 064
  6. NORTRIPTYLINE [Suspect]
     Active Substance: NORTRIPTYLINE
     Dosage: 1 EVERY 1 DAYS
     Route: 064
  7. METHADONE [Suspect]
     Active Substance: METHADONE HYDROCHLORIDE
     Dosage: 1 EVERY 1 DAYS, DYE FREE, SUGAR FREE, UNFLAVORED
     Route: 064
  8. BENZTROPINE MESYLATE [Suspect]
     Active Substance: BENZTROPINE MESYLATE
     Dosage: 1 EVERY 1 DAYS
     Route: 064

REACTIONS (10)
  - Premature baby [Recovered/Resolved]
  - Crying [Recovered/Resolved]
  - Drug withdrawal syndrome [Recovered/Resolved]
  - Drug withdrawal syndrome neonatal [Recovered/Resolved]
  - Foetal exposure during pregnancy [Unknown]
  - Muscle tone disorder [Recovered/Resolved]
  - Sleep disorder [Recovered/Resolved]
  - Tremor [Recovered/Resolved]
  - Trismus [Recovered/Resolved]
  - Drug abuser [Unknown]
